FAERS Safety Report 10756893 (Version 1)
Quarter: 2015Q1

REPORT INFORMATION
  Report Type: Spontaneous
  Country: US (occurrence: US)
  Receive Date: 20150203
  Receipt Date: 20150203
  Transmission Date: 20150721
  Serious: No
  Sender: FDA-Public Use
  Company Number: US-LEO PHARMA-232131

PATIENT
  Age: 55 Year

DRUGS (1)
  1. PICATO [Suspect]
     Active Substance: INGENOL MEBUTATE
     Indication: PRECANCEROUS SKIN LESION
     Route: 061
     Dates: start: 20150118, end: 20150119

REACTIONS (5)
  - Application site pain [Recovered/Resolved]
  - Application site erythema [Recovering/Resolving]
  - Incorrect drug administration duration [Unknown]
  - Application site pain [Recovering/Resolving]
  - Incorrect product storage [Unknown]

NARRATIVE: CASE EVENT DATE: 20150119
